FAERS Safety Report 5452186-8 (Version None)
Quarter: 2007Q3

REPORT INFORMATION
  Report Type: 
  Country: None (occurrence: None)
  Receive Date: 20070914
  Receipt Date: 20070910
  Transmission Date: 20080115
  Serious: Yes (Other)
  Sender: FDA-Public Use
  Company Number: PHEH2007US12153

PATIENT
  Sex: Male

DRUGS (1)
  1. DIOVAN HCT [Suspect]
     Indication: HYPERTENSION
     Dosage: 1 TABLET, QD
     Route: 048

REACTIONS (3)
  - DYSPNOEA [None]
  - FOREIGN BODY TRAUMA [None]
  - THROAT TIGHTNESS [None]
